FAERS Safety Report 10741173 (Version 2)
Quarter: 2015Q3

REPORT INFORMATION
  Report Type: Spontaneous
  Country: US (occurrence: US)
  Receive Date: 20150127
  Receipt Date: 20150804
  Transmission Date: 20151125
  Serious: Yes (Life-Threatening, Hospitalization)
  Sender: FDA-Public Use
  Company Number: US-BAYER-2015-011848

PATIENT
  Age: 20 Year
  Sex: Female
  Weight: 61.22 kg

DRUGS (4)
  1. ZOFRAN [Concomitant]
     Active Substance: ONDANSETRON HYDROCHLORIDE
  2. OMEPRAZOLE. [Concomitant]
     Active Substance: OMEPRAZOLE
  3. DICLOFENAC [Concomitant]
     Active Substance: DICLOFENAC
  4. MIRENA [Suspect]
     Active Substance: LEVONORGESTREL
     Indication: CONTRACEPTION
     Dosage: 20 MCG/24HR, CONT
     Route: 015
     Dates: start: 20110713, end: 20120120

REACTIONS (4)
  - Abdominal pain lower [None]
  - Uterine perforation [None]
  - General physical health deterioration [None]
  - Injury [None]

NARRATIVE: CASE EVENT DATE: 20110826
